FAERS Safety Report 24108425 (Version 2)
Quarter: 2024Q3

REPORT INFORMATION
  Report Type: Spontaneous
  Country: IE (occurrence: IE)
  Receive Date: 20240718
  Receipt Date: 20240723
  Transmission Date: 20241017
  Serious: Yes (Hospitalization)
  Sender: JOHNSON AND JOHNSON
  Company Number: IE-JNJFOC-20240737756

PATIENT
  Age: 69 Year
  Sex: Male

DRUGS (6)
  1. SPORANOX [Suspect]
     Active Substance: ITRACONAZOLE
     Indication: Tracheobronchomegaly
     Route: 048
  2. SPORANOX [Suspect]
     Active Substance: ITRACONAZOLE
     Indication: Aspergilloma
  3. VORICONAZOLE [Concomitant]
     Active Substance: VORICONAZOLE
     Indication: Aspergilloma
     Route: 048
  4. VORICONAZOLE [Concomitant]
     Active Substance: VORICONAZOLE
     Indication: Tracheobronchomegaly
  5. TRANEXAMIC ACID [Concomitant]
     Active Substance: TRANEXAMIC ACID
     Indication: Aspergilloma
     Route: 048
  6. TRANEXAMIC ACID [Concomitant]
     Active Substance: TRANEXAMIC ACID
     Indication: Tracheobronchomegaly

REACTIONS (1)
  - Clostridium difficile infection [Recovered/Resolved]
